FAERS Safety Report 5959034-8 (Version None)
Quarter: 2008Q4

REPORT INFORMATION
  Report Type: 
  Country: None (occurrence: None)
  Receive Date: 20081120
  Receipt Date: 20081112
  Transmission Date: 20090506
  Serious: Yes (Hospitalization)
  Sender: FDA-Public Use
  Company Number: JP-JNJFOC-20081103912

PATIENT
  Age: 69 Year
  Sex: Male

DRUGS (7)
  1. LEUSTATIN [Suspect]
     Indication: EXTRANODAL MARGINAL ZONE B-CELL LYMPHOMA (MALT TYPE)
     Route: 041
  2. RITUXIMAB [Suspect]
     Indication: EXTRANODAL MARGINAL ZONE B-CELL LYMPHOMA (MALT TYPE)
     Route: 041
  3. MYSLEE [Concomitant]
     Indication: INSOMNIA
     Route: 048
  4. GASMOTIN [Concomitant]
     Indication: GASTRITIS
     Route: 048
  5. KYTRIL [Concomitant]
     Indication: PROPHYLAXIS OF NAUSEA AND VOMITING
     Route: 042
  6. ITRIZOLE [Concomitant]
     Indication: PROPHYLAXIS
     Route: 048
  7. COTRIM [Concomitant]
     Indication: PROPHYLAXIS
     Route: 048

REACTIONS (1)
  - ADENOVIRAL HAEMORRHAGIC CYSTITIS [None]
